FAERS Safety Report 9715264 (Version 1)
Quarter: 2013Q4

REPORT INFORMATION
  Report Type: Spontaneous
  Country: AR (occurrence: AR)
  Receive Date: 20131127
  Receipt Date: 20131127
  Transmission Date: 20140711
  Serious: Yes (Hospitalization, Other)
  Sender: FDA-Public Use
  Company Number: AR-AMGEN-ARGSP2013083324

PATIENT
  Age: 61 Year
  Sex: Male

DRUGS (2)
  1. ENBREL [Suspect]
     Indication: RHEUMATOID ARTHRITIS
     Dosage: 50 MG, 2X/WEEK
     Route: 065
     Dates: start: 20091212
  2. ENBREL [Suspect]
     Dosage: 50 MG, WEEKLY
     Route: 065

REACTIONS (4)
  - Synovial rupture [Recovered/Resolved]
  - Arthralgia [Recovered/Resolved]
  - Joint effusion [Not Recovered/Not Resolved]
  - Arthritis infective [Recovered/Resolved]
